FAERS Safety Report 4569573-2 (Version None)
Quarter: 2005Q1

REPORT INFORMATION
  Report Type: 
  Country: None (occurrence: None)
  Receive Date: 20050201
  Receipt Date: 20050126
  Transmission Date: 20050727
  Serious: Yes (Hospitalization)
  Sender: FDA-Public Use
  Company Number: K200500036

PATIENT
  Age: 39 Year
  Sex: Female

DRUGS (4)
  1. SONATA [Suspect]
     Dosage: 70 MG, (14 CAPSULES), SINGLE, ORAL
     Route: 048
     Dates: start: 20050106, end: 20050106
  2. CIPRAMIL (CITALOPRAM HYDROCHLORIDE) TABLET, 400MG [Suspect]
     Dosage: 400 MG, (20 TABLETS), SINGLE, ORAL
     Route: 048
     Dates: start: 20050106, end: 20050106
  3. TAFIL (ALPRAZOLAM) TABLET, 20 MG [Suspect]
     Dosage: 20 MG, (20 TABLETS), SINGLE, ORAL
     Route: 048
     Dates: start: 20050106, end: 20050106
  4. ZYPREXA [Suspect]
     Dosage: 50 MG, (10 TABLETS), SINGLE, ORAL
     Route: 048
     Dates: start: 20050106, end: 20050106

REACTIONS (8)
  - AGITATION [None]
  - FATIGUE [None]
  - HYPOGLYCAEMIA [None]
  - HYPOTENSION [None]
  - INTENTIONAL MISUSE [None]
  - MYDRIASIS [None]
  - VENTRICULAR EXTRASYSTOLES [None]
  - VERTIGO [None]
